FAERS Safety Report 6502012-0 (Version None)
Quarter: 2009Q4

REPORT INFORMATION
  Report Type: 
  Country: None (occurrence: None)
  Receive Date: 20091203
  Receipt Date: 20091118
  Transmission Date: 20100525
  Serious: Yes (Life-Threatening, Hospitalization)
  Sender: FDA-Public Use
  Company Number: THYM-1001288

PATIENT
  Age: 11 Year
  Sex: Female
  Weight: 42 kg

DRUGS (6)
  1. THYMOGLOBULIN [Suspect]
     Indication: KIDNEY TRANSPLANT REJECTION
     Dosage: INTRAVENOUS
     Route: 042
     Dates: start: 20090701, end: 20090701
  2. METHYLPREDNISOLONE ACETATE [Concomitant]
  3. VALCYTE [Concomitant]
  4. CO-TRIMOXAZOLE [Concomitant]
  5. PROGRAF [Concomitant]
  6. CELLCEPT [Concomitant]

REACTIONS (1)
  - AGRANULOCYTOSIS [None]
